FAERS Safety Report 7917193-1 (Version None)
Quarter: 2011Q4

REPORT INFORMATION
  Report Type: 
  Country: None (occurrence: None)
  Receive Date: 20111116
  Receipt Date: 20110706
  Transmission Date: 20120403
  Serious: Yes (Death, Life-Threatening, Hospitalization)
  Sender: FDA-Public Use
  Company Number: JP-BAYER-201013296BYL

PATIENT
  Age: 69 Year
  Sex: Female
  Weight: 48 kg

DRUGS (6)
  1. NAPA [Concomitant]
     Indication: PAIN
     Dosage: 0.5 G, PRN
     Route: 048
     Dates: start: 20100320, end: 20100618
  2. LOXOPROFEN [Concomitant]
     Indication: PAIN
     Dosage: 60 MG, PRN
     Route: 048
     Dates: start: 20100619
  3. RABEPRAZOLE SODIUM [Concomitant]
     Indication: GASTRITIS PROPHYLAXIS
     Dosage: DAILY DOSE 10 MG
     Route: 048
     Dates: start: 20100318
  4. NEXAVAR [Suspect]
     Indication: HEPATIC NEOPLASM MALIGNANT
     Dosage: 400 MG, QD
     Route: 048
     Dates: start: 20100614, end: 20100616
  5. ACETAMINOPHEN [Concomitant]
     Indication: PYREXIA
     Dosage: 200 MG, PRN
     Route: 054
     Dates: start: 20100512
  6. UREPEARL [Concomitant]
     Indication: PRURITUS
     Dosage: UNK
     Route: 061
     Dates: start: 20100610

REACTIONS (6)
  - HEPATIC NEOPLASM MALIGNANT [None]
  - PYREXIA [None]
  - HYPOXIA [None]
  - TUMOUR NECROSIS [None]
  - ABDOMINAL PAIN UPPER [None]
  - HEPATIC FUNCTION ABNORMAL [None]
